FAERS Safety Report 4374188-5 (Version None)
Quarter: 2004Q2

REPORT INFORMATION
  Report Type: 
  Country: None (occurrence: None)
  Receive Date: 20040608
  Receipt Date: 20040608
  Transmission Date: 20050107
  Serious: Yes (Hospitalization)
  Sender: FDA-Public Use
  Company Number: None

PATIENT
  Age: 45 Year
  Sex: Female
  Weight: 61.2356 kg

DRUGS (1)
  1. DURAGESIC [Suspect]
     Dosage: TRANSDERMAL
     Route: 062
     Dates: start: 20040101, end: 20040331

REACTIONS (6)
  - ABNORMAL BEHAVIOUR [None]
  - AMNESIA [None]
  - DEPRESSED LEVEL OF CONSCIOUSNESS [None]
  - LOSS OF CONSCIOUSNESS [None]
  - MEDICATION ERROR [None]
  - PHARMACEUTICAL PRODUCT COMPLAINT [None]
